FAERS Safety Report 12982727 (Version 1)
Quarter: 2016Q4

REPORT INFORMATION
  Report Type: Spontaneous
  Country: US (occurrence: US)
  Receive Date: 20161129
  Receipt Date: 20161129
  Transmission Date: 20170207
  Serious: No
  Sender: FDA-Public Use
  Company Number: US-BAXALTA-2016BLT008046

PATIENT
  Age: 61 Year
  Sex: Male
  Weight: 105.4 kg

DRUGS (2)
  1. HYQVIA [Suspect]
     Active Substance: HUMAN IMMUNOGLOBULIN G\HYALURONIDASE RECOMBINANT HUMAN
     Dosage: 40 G, EVERY 4 WK
     Route: 058
     Dates: start: 20161026
  2. HYQVIA [Suspect]
     Active Substance: HUMAN IMMUNOGLOBULIN G\HYALURONIDASE RECOMBINANT HUMAN
     Indication: IMMUNODEFICIENCY COMMON VARIABLE
     Dosage: 40 G, EVERY 4 WK
     Route: 058
     Dates: start: 20160928

REACTIONS (4)
  - Nausea [Recovered/Resolved]
  - Lung disorder [Not Recovered/Not Resolved]
  - Fatigue [Recovered/Resolved]
  - Condition aggravated [Not Recovered/Not Resolved]

NARRATIVE: CASE EVENT DATE: 20160928
